FAERS Safety Report 15344895 (Version 4)
Quarter: 2019Q2

REPORT INFORMATION
  Report Type: Spontaneous
  Country: US (occurrence: US)
  Receive Date: 20180903
  Receipt Date: 20190410
  Transmission Date: 20190711
  Serious: Yes (Other)
  Sender: FDA-Public Use
  Company Number: US-SA-2018SA244000

PATIENT
  Age: 36 Year
  Sex: Female
  Weight: 76 kg

DRUGS (1)
  1. DUPIXENT [Suspect]
     Active Substance: DUPILUMAB
     Indication: DERMATITIS ATOPIC
     Dosage: 300 MG, QOW
     Route: 058
     Dates: start: 20180612

REACTIONS (4)
  - Periorbital swelling [Unknown]
  - Visual impairment [Unknown]
  - Pyrexia [Recovered/Resolved]
  - Cataract [Unknown]

NARRATIVE: CASE EVENT DATE: 20180815
